FAERS Safety Report 16184681 (Version 1)
Quarter: 2019Q2

REPORT INFORMATION
  Report Type: Spontaneous
  Country: US (occurrence: US)
  Receive Date: 20190410
  Receipt Date: 20190410
  Transmission Date: 20190711
  Serious: Yes (Life-Threatening, Disabling)
  Sender: FDA-Public Use
  Company Number: None

PATIENT
  Age: 84 Year
  Sex: Male

DRUGS (6)
  1. METOPROLOL. [Concomitant]
     Active Substance: METOPROLOL
  2. INSULIN [Concomitant]
     Active Substance: INSULIN NOS
  3. FUROSEMIDE. [Concomitant]
     Active Substance: FUROSEMIDE
  4. JARDIANCE [Suspect]
     Active Substance: EMPAGLIFLOZIN
     Indication: TYPE 2 DIABETES MELLITUS
     Route: 048
     Dates: start: 20190101, end: 20190401
  5. LOSARTAN. [Concomitant]
     Active Substance: LOSARTAN
  6. ACETOMINAPHEN [Concomitant]

REACTIONS (2)
  - Liver disorder [None]
  - Renal disorder [None]
